FAERS Safety Report 5307379-7 (Version None)
Quarter: 2007Q2

REPORT INFORMATION
  Report Type: 
  Country: None (occurrence: None)
  Receive Date: 20070425
  Receipt Date: 20070411
  Transmission Date: 20071010
  Serious: Yes (Other)
  Sender: FDA-Public Use
  Company Number: US-GLAXOSMITHKLINE-B0467236A

PATIENT

DRUGS (2)
  1. FERROUS SULFATE TAB [Suspect]
     Dosage: 325MG THREE TIMES PER DAY
     Route: 048
  2. EPOETIN ALFA [Concomitant]
     Route: 058

REACTIONS (1)
  - DEHYDRATION [None]
